FAERS Safety Report 23053346 (Version 1)
Quarter: 2023Q4

REPORT INFORMATION
  Report Type: Spontaneous
  Country: US (occurrence: US)
  Receive Date: 20231011
  Receipt Date: 20231011
  Transmission Date: 20240109
  Serious: No
  Sender: FDA-Public Use
  Company Number: US-SANDOZ-SDZ2023US040391

PATIENT
  Sex: Female

DRUGS (1)
  1. HYDROXYZINE PAMOATE [Suspect]
     Active Substance: HYDROXYZINE PAMOATE
     Indication: Product used for unknown indication
     Dosage: DAILY AS NEEDED (ONLY TOOK IT 3X)
     Route: 065

REACTIONS (11)
  - Myalgia [Unknown]
  - Muscle tightness [Unknown]
  - Musculoskeletal stiffness [Unknown]
  - Syncope [Unknown]
  - Dizziness [Unknown]
  - Nasopharyngitis [Unknown]
  - Pain [Unknown]
  - Chills [Unknown]
  - Tremor [Unknown]
  - Freezing phenomenon [Unknown]
  - Movement disorder [Unknown]
